FAERS Safety Report 8786252 (Version 2)
Quarter: 2012Q4

REPORT INFORMATION
  Report Type: 
  Country: US (occurrence: US)
  Receive Date: 20120914
  Receipt Date: 20121012
  Transmission Date: 20130627
  Serious: Yes (Hospitalization, Other)
  Sender: FDA-Public Use
  Company Number: US-PFIZER INC-2010060448

PATIENT
  Age: 65 Year
  Sex: Female

DRUGS (2)
  1. LIPITOR [Suspect]
     Dosage: 20 mg (one half tablet of 40 mg), 1x/day
     Route: 048
  2. NEURONTIN [Suspect]
     Dosage: UNK

REACTIONS (3)
  - Pneumothorax [Unknown]
  - Upper limb fracture [Unknown]
  - Fall [Unknown]
